FAERS Safety Report 5959958-1 (Version None)
Quarter: 2008Q4

REPORT INFORMATION
  Report Type: 
  Country: None (occurrence: None)
  Receive Date: 20081120
  Receipt Date: 20081113
  Transmission Date: 20090506
  Serious: Yes (Hospitalization)
  Sender: FDA-Public Use
  Company Number: CG-MERCK-0811USA02339

PATIENT
  Age: 32 Year
  Sex: Male
  Weight: 54 kg

DRUGS (1)
  1. STROMECTOL [Suspect]
     Indication: ONCHOCERCIASIS
     Route: 048
     Dates: start: 20071201, end: 20071201

REACTIONS (12)
  - ASTHENIA [None]
  - DYSPHAGIA [None]
  - GAIT DISTURBANCE [None]
  - HEADACHE [None]
  - HYPERGLYCAEMIA [None]
  - MALARIA [None]
  - NUCHAL RIGIDITY [None]
  - OCULAR HYPERAEMIA [None]
  - PARESIS [None]
  - PYREXIA [None]
  - URINARY INCONTINENCE [None]
  - VERTIGO [None]
